FAERS Safety Report 4752939-5 (Version None)
Quarter: 2005Q3

REPORT INFORMATION
  Report Type: 
  Country: None (occurrence: None)
  Receive Date: 20050823
  Receipt Date: 20050520
  Transmission Date: 20060218
  Serious: Yes (Other)
  Sender: FDA-Public Use
  Company Number: 18540

PATIENT
  Age: 68 Year
  Sex: Female
  Weight: 114 kg

DRUGS (1)
  1. AMIODARONE HCL [Suspect]
     Indication: CHEST PAIN
     Dosage: IVPB OVER 24 HOURS
     Route: 042
     Dates: start: 20050519, end: 20050520

REACTIONS (1)
  - EXTRAVASATION [None]
